FAERS Safety Report 6030581-6 (Version None)
Quarter: 2009Q1

REPORT INFORMATION
  Report Type: 
  Country: None (occurrence: None)
  Receive Date: 20090106
  Receipt Date: 20090106
  Transmission Date: 20090719
  Serious: Yes (Hospitalization)
  Sender: FDA-Public Use
  Company Number: None

PATIENT
  Age: 64 Year
  Sex: Male
  Weight: 97.7 kg

DRUGS (2)
  1. HEPARIN [Suspect]
     Indication: ATRIAL FLUTTER
     Dosage: 16 ML PERHOUR IV
     Route: 042
     Dates: start: 20080929, end: 20081008
  2. WARFARIN SODIUM [Suspect]
     Dosage: 5 MG PM PO
     Route: 048
     Dates: start: 20081001, end: 20081004

REACTIONS (3)
  - ACTIVATED PARTIAL THROMBOPLASTIN TIME PROLONGED [None]
  - DUODENAL ULCER HAEMORRHAGE [None]
  - MYASTHENIA GRAVIS [None]
